FAERS Safety Report 9717085 (Version 2)
Quarter: 2014Q1

REPORT INFORMATION
  Report Type: Spontaneous
  Country: US (occurrence: US)
  Receive Date: 20131127
  Receipt Date: 20140127
  Transmission Date: 20141002
  Serious: Yes (Other)
  Sender: FDA-Public Use
  Company Number: US-PURDUE-USA-2013-0109022

PATIENT
  Age: 64 Year
  Sex: Female

DRUGS (2)
  1. BUTRANS [Suspect]
     Indication: COMPLEX REGIONAL PAIN SYNDROME
     Dosage: 10 MCG/HR, WEEKLY
     Route: 062
  2. BUTRANS [Suspect]
     Indication: COMPLEX REGIONAL PAIN SYNDROME

REACTIONS (11)
  - Cataract [Unknown]
  - Biopsy [Unknown]
  - Application site discolouration [Unknown]
  - Pain [Unknown]
  - Vomiting [Unknown]
  - Application site erythema [Recovering/Resolving]
  - Application site pain [Recovered/Resolved]
  - Wrong technique in drug usage process [Unknown]
  - Diarrhoea [Unknown]
  - Dry eye [Unknown]
  - Product adhesion issue [Unknown]
